FAERS Safety Report 5769227-0 (Version None)
Quarter: 2008Q2

REPORT INFORMATION
  Report Type: 
  Country: None (occurrence: None)
  Receive Date: 20080612
  Receipt Date: 20080326
  Transmission Date: 20081010
  Serious: No
  Sender: FDA-Public Use
  Company Number: US-ABBOTT-08P-163-0444127-00

PATIENT
  Sex: Female
  Weight: 70.37 kg

DRUGS (2)
  1. HUMIRA [Suspect]
     Indication: RHEUMATOID ARTHRITIS
     Route: 058
     Dates: start: 20080101, end: 20080301
  2. HUMIRA [Suspect]
     Route: 058
     Dates: start: 20080319

REACTIONS (5)
  - BRONCHITIS [None]
  - COUGH [None]
  - LARYNGITIS [None]
  - NASOPHARYNGITIS [None]
  - PYREXIA [None]
